FAERS Safety Report 24937514 (Version 2)
Quarter: 2025Q1

REPORT INFORMATION
  Report Type: Spontaneous
  Country: US (occurrence: US)
  Receive Date: 20250206
  Receipt Date: 20250303
  Transmission Date: 20250409
  Serious: Yes (Other)
  Sender: SANOFI AVENTIS
  Company Number: US-SA-2025SA037296

PATIENT
  Age: 64 Year
  Sex: Female

DRUGS (3)
  1. DUPIXENT [Suspect]
     Active Substance: DUPILUMAB
     Indication: Asthma
     Dosage: 300 MG, QOW
     Route: 058
     Dates: start: 202501
  2. DUPIXENT [Suspect]
     Active Substance: DUPILUMAB
     Route: 058
     Dates: start: 20250201
  3. DUPIXENT [Suspect]
     Active Substance: DUPILUMAB
     Dosage: 300 MG, QOW
     Route: 058
     Dates: start: 202502

REACTIONS (18)
  - Embolism [Unknown]
  - Thrombosis [Unknown]
  - Eye symptom [Unknown]
  - Influenza like illness [Unknown]
  - Weight increased [Unknown]
  - Peripheral swelling [Unknown]
  - Cardiovascular disorder [Unknown]
  - Pain [Unknown]
  - Rhinorrhoea [Unknown]
  - Fatigue [Unknown]
  - Dyspnoea [Unknown]
  - Muscle tightness [Unknown]
  - Viral infection [Unknown]
  - Pyrexia [Unknown]
  - Chest discomfort [Unknown]
  - Nausea [Unknown]
  - Eye pain [Unknown]
  - Drug ineffective [Unknown]

NARRATIVE: CASE EVENT DATE: 20250101
